FAERS Safety Report 6330359-X (Version None)
Quarter: 2009Q3

REPORT INFORMATION
  Report Type: 
  Country: None (occurrence: None)
  Receive Date: 20090827
  Receipt Date: 20090819
  Transmission Date: 20100115
  Serious: Yes (Other)
  Sender: FDA-Public Use
  Company Number: GB-WYE-G04268409

PATIENT
  Age: 15 Year
  Sex: Female

DRUGS (2)
  1. EFFEXOR [Suspect]
     Indication: DEPRESSION
     Dosage: 37.5 MG (FREQUENCY UNKNOWN)
     Route: 048
     Dates: start: 20090730, end: 20090807
  2. PROMETHAZINE HCL [Concomitant]
     Dosage: UNKNOWN

REACTIONS (1)
  - DIZZINESS [None]
